FAERS Safety Report 8980164 (Version 1)
Quarter: 2012Q4

REPORT INFORMATION
  Report Type: 
  Country: JP (occurrence: JP)
  Receive Date: 20121221
  Receipt Date: 20121221
  Transmission Date: 20130627
  Serious: Yes (Other)
  Sender: FDA-Public Use
  Company Number: PHHY2012JP116975

PATIENT
  Age: 62 Year
  Sex: Male

DRUGS (3)
  1. DOXORUBICIN HYDROCHLORIDE [Suspect]
     Indication: MALIGNANT FIBROUS HISTIOCYTOMA
     Dosage: 135 mg, Q6H
  2. IFOSFAMIDE [Suspect]
     Indication: MALIGNANT FIBROUS HISTIOCYTOMA
     Dosage: 20 g, TID
  3. IFOSFAMIDE [Suspect]
     Dosage: 17.5 g, QD

REACTIONS (5)
  - Sweat gland tumour [Unknown]
  - Skin mass [Unknown]
  - Erythema [Unknown]
  - Tumour haemorrhage [Unknown]
  - Skin lesion [Unknown]
